FAERS Safety Report 6597733-8 (Version None)
Quarter: 2010Q1

REPORT INFORMATION
  Report Type: 
  Country: None (occurrence: None)
  Receive Date: 20100216
  Receipt Date: 20100204
  Transmission Date: 20100710
  Serious: Yes (Life-Threatening, Hospitalization)
  Sender: FDA-Public Use
  Company Number: 2010AL000757

PATIENT
  Age: 5 Year
  Sex: Male

DRUGS (4)
  1. PHENYTOIN [Suspect]
     Indication: CONVULSION
     Dosage: UNKNONW;TID;PO
     Route: 048
  2. VALPROATE SODIUM [Concomitant]
  3. CLORAZEPATE DIPOTASSIUM [Concomitant]
  4. PHENYTOIN [Concomitant]

REACTIONS (8)
  - AGRANULOCYTOSIS [None]
  - ALANINE AMINOTRANSFERASE INCREASED [None]
  - ASPARTATE AMINOTRANSFERASE INCREASED [None]
  - DRUG HYPERSENSITIVITY [None]
  - DRUG RASH WITH EOSINOPHILIA AND SYSTEMIC SYMPTOMS [None]
  - HYPERTRANSAMINASAEMIA [None]
  - PIGMENTATION DISORDER [None]
  - SEPSIS [None]
